FAERS Safety Report 14142062 (Version 3)
Quarter: 2017Q4

REPORT INFORMATION
  Report Type: Report from Study
  Country: US (occurrence: US)
  Receive Date: 20171030
  Receipt Date: 20171114
  Transmission Date: 20180321
  Serious: Yes (Hospitalization)
  Sender: FDA-Public Use
  Company Number: US-PUMA BIOTECHNOLOGY, LTD.-2017US013867

PATIENT

DRUGS (2)
  1. NERLYNX [Suspect]
     Active Substance: NERATINIB
     Dosage: 160 MG, DAILY
     Dates: start: 20170930
  2. NERLYNX [Suspect]
     Active Substance: NERATINIB
     Indication: BREAST CANCER
     Dosage: 240 MG, DAILY
     Route: 048
     Dates: start: 20170907, end: 20170929

REACTIONS (5)
  - Neck pain [Unknown]
  - Fatigue [Unknown]
  - Diarrhoea [Unknown]
  - Hospitalisation [Unknown]
  - Back pain [Unknown]

NARRATIVE: CASE EVENT DATE: 201710
